FAERS Safety Report 8734835 (Version 3)
Quarter: 2012Q4

REPORT INFORMATION
  Report Type: Report from Study
  Country: US (occurrence: US)
  Receive Date: 20120821
  Receipt Date: 20120918
  Transmission Date: 20130627
  Serious: Yes (Hospitalization)
  Sender: FDA-Public Use
  Company Number: US-ABBOTT-12P-163-0968480-00

PATIENT
  Age: 50 None
  Sex: Female

DRUGS (13)
  1. HUMIRA 40 MG/0.8 ML PEN [Suspect]
     Indication: RHEUMATOID ARTHRITIS
     Route: 058
     Dates: start: 201008
  2. FENTANYL [Concomitant]
     Indication: PRODUCT USED FOR UNKNOWN INDICATION
     Dosage: 25mcg/hr patch
  3. METHOTREXATE [Concomitant]
     Indication: PRODUCT USED FOR UNKNOWN INDICATION
     Dosage: 1 cc (25 mg/cc)
     Route: 058
  4. PLAQUENIL [Concomitant]
     Indication: PRODUCT USED FOR UNKNOWN INDICATION
     Route: 048
  5. PREDNISONE [Concomitant]
     Indication: PRODUCT USED FOR UNKNOWN INDICATION
     Route: 048
  6. FOLIC ACID [Concomitant]
     Indication: PRODUCT USED FOR UNKNOWN INDICATION
     Route: 048
  7. LYRICA [Concomitant]
     Indication: FIBROMYALGIA
  8. NORFLEX [Concomitant]
     Indication: MYALGIA
     Dosage: PRN
     Route: 048
  9. NORFLEX [Concomitant]
     Indication: MUSCLE SPASMS
  10. DURAGESIC PATCH [Concomitant]
     Indication: FIBROMYALGIA
     Dosage: 25 mcg/h
  11. PERCOCET [Concomitant]
     Indication: BREAKTHROUGH PAIN
     Dosage: 10/325 PRN
     Route: 048
  12. ATELVIA [Concomitant]
     Indication: OSTEOPOROSIS
     Route: 048
  13. CALCIUM PLUS VITAMIN D [Concomitant]
     Indication: MINERAL SUPPLEMENTATION

REACTIONS (13)
  - Lower respiratory tract inflammation [Recovering/Resolving]
  - Upper respiratory tract infection [Recovering/Resolving]
  - Pulmonary oedema [Recovering/Resolving]
  - Pneumonia [Recovering/Resolving]
  - Urinary tract infection [Recovering/Resolving]
  - Musculoskeletal stiffness [Unknown]
  - Weight decreased [Unknown]
  - Systemic lupus erythematosus [Unknown]
  - Synovitis [Unknown]
  - Fibromyalgia [Unknown]
  - Osteoporosis [Unknown]
  - Osteoarthritis [Unknown]
  - Renal failure [Unknown]
